FAERS Safety Report 21493533 (Version 1)
Quarter: 2022Q4

REPORT INFORMATION
  Report Type: Spontaneous
  Country: CN (occurrence: CN)
  Receive Date: 20221021
  Receipt Date: 20221021
  Transmission Date: 20230112
  Serious: Yes (Other)
  Sender: FDA-Public Use
  Company Number: CN-NAPPMUNDI-GBR-2022-0102335

PATIENT
  Age: 57 Year
  Sex: Female
  Weight: 51 kg

DRUGS (4)
  1. MS CONTIN [Suspect]
     Active Substance: MORPHINE SULFATE
     Indication: Tumour pain
     Dosage: 30 MILLIGRAM, BID
     Route: 048
     Dates: start: 20220505, end: 20220505
  2. MS CONTIN [Suspect]
     Active Substance: MORPHINE SULFATE
     Dosage: 60 MILLIGRAM, BID
     Route: 048
     Dates: start: 20220506, end: 20220508
  3. MORPHINE HYDROCHLORIDE [Suspect]
     Active Substance: MORPHINE HYDROCHLORIDE
     Indication: Tumour pain
     Dosage: 5 MILLIGRAM, DAILY
     Route: 042
     Dates: start: 20220505, end: 20220505
  4. MORPHINE HYDROCHLORIDE [Suspect]
     Active Substance: MORPHINE HYDROCHLORIDE
     Dosage: 10 MILLIGRAM, DAILY
     Route: 042
     Dates: start: 20220506, end: 20220506

REACTIONS (4)
  - Loss of consciousness [Recovering/Resolving]
  - Respiratory rate decreased [Recovering/Resolving]
  - Pupillary reflex impaired [Recovering/Resolving]
  - Heart rate increased [Recovering/Resolving]

NARRATIVE: CASE EVENT DATE: 20220508
